FAERS Safety Report 9384500 (Version 1)
Quarter: 2013Q3

REPORT INFORMATION
  Report Type: Report from Study
  Country: AR (occurrence: AR)
  Receive Date: 20130705
  Receipt Date: 20130705
  Transmission Date: 20140515
  Serious: Yes (Hospitalization, Other)
  Sender: FDA-Public Use
  Company Number: PHHY2013AR070605

PATIENT
  Sex: Male

DRUGS (2)
  1. GLIVEC [Suspect]
     Indication: CHRONIC MYELOID LEUKAEMIA
     Dosage: 400 MG, QD
     Route: 048
     Dates: start: 200601
  2. GLIVEC [Suspect]
     Dosage: UNK UKN, UNK

REACTIONS (6)
  - Coma [Recovered/Resolved]
  - Cerebrovascular accident [Recovering/Resolving]
  - Prostate examination abnormal [Not Recovered/Not Resolved]
  - Fall [Unknown]
  - Foot fracture [Recovering/Resolving]
  - Road traffic accident [Unknown]
